FAERS Safety Report 4964061-3 (Version None)
Quarter: 2006Q1

REPORT INFORMATION
  Report Type: 
  Country: None (occurrence: None)
  Receive Date: 20060330
  Receipt Date: 20060309
  Transmission Date: 20060701
  Serious: Yes (Other)
  Sender: FDA-Public Use
  Company Number: US200603002681

PATIENT
  Age: 58 Year
  Sex: Female

DRUGS (4)
  1. HUMAN INSULIN (RDNA ORIGIN)(HUMAN INSULIN (RDNA ORIGIN) UNKNOWN FORMUL [Suspect]
     Indication: DIABETES MELLITUS
  2. INSULIN, ANIMAL (INSULIN, ANIMAL) VIAL [Suspect]
     Indication: DIABETES MELLITUS
     Dosage: AS NEEDED
  3. INSULIN, ANIMAL (INSULIN, ANIMAL) VIAL [Suspect]
     Indication: DIABETES MELLITUS
     Dosage: AS NEEDED
  4. ASPIRIN [Concomitant]

REACTIONS (3)
  - BLOOD GLUCOSE FLUCTUATION [None]
  - INTERVERTEBRAL DISC OPERATION [None]
  - PHARMACEUTICAL PRODUCT COMPLAINT [None]
